FAERS Safety Report 23602168 (Version 1)
Quarter: 2024Q1

REPORT INFORMATION
  Report Type: Spontaneous
  Country: US (occurrence: None)
  Receive Date: 20240306
  Receipt Date: 20240306
  Transmission Date: 20240410
  Serious: Yes (Other)
  Sender: FDA-Public Use
  Company Number: None

PATIENT
  Sex: 0

DRUGS (2)
  1. SILDENAFIL [Suspect]
     Active Substance: SILDENAFIL
  2. VIAGRA [Suspect]
     Active Substance: SILDENAFIL CITRATE

REACTIONS (4)
  - Dyschromatopsia [None]
  - Vision blurred [None]
  - Product formulation issue [None]
  - Product label issue [None]
